FAERS Safety Report 9099262 (Version 7)
Quarter: 2017Q3

REPORT INFORMATION
  Report Type: Report from Study
  Country: US (occurrence: US)
  Receive Date: 20130213
  Receipt Date: 20170718
  Transmission Date: 20171128
  Serious: Yes (Death, Hospitalization)
  Sender: FDA-Public Use
  Company Number: US-JNJFOC-20130201683

PATIENT
  Age: 41 Year
  Sex: Male
  Weight: 78.6 kg

DRUGS (17)
  1. USTEKINUMAB [Suspect]
     Active Substance: USTEKINUMAB
     Indication: PSORIASIS
     Route: 058
     Dates: start: 20100817
  2. PROPECIA [Concomitant]
     Active Substance: FINASTERIDE
     Route: 048
     Dates: start: 20080417
  3. TESTOPEL PELLETS [Concomitant]
     Indication: HYPOGONADISM
     Dosage: ONCE IN 3-6 MONTHS
     Route: 065
     Dates: start: 20120822
  4. CHANTIX [Concomitant]
     Active Substance: VARENICLINE TARTRATE
     Indication: SMOKING CESSATION THERAPY
     Route: 048
     Dates: start: 20110203, end: 20110615
  5. USTEKINUMAB [Suspect]
     Active Substance: USTEKINUMAB
     Indication: PSORIASIS
     Route: 058
     Dates: start: 20121116
  6. VECTICAL [Concomitant]
     Active Substance: CALCITRIOL
     Indication: PSORIASIS
     Route: 061
  7. FLEXERIL [Concomitant]
     Active Substance: CYCLOBENZAPRINE HYDROCHLORIDE
     Indication: LIGAMENT RUPTURE
     Route: 048
     Dates: start: 201010, end: 201011
  8. MOBIC [Concomitant]
     Active Substance: MELOXICAM
     Indication: LIGAMENT RUPTURE
     Route: 048
     Dates: start: 201010, end: 201011
  9. USTEKINUMAB [Suspect]
     Active Substance: USTEKINUMAB
     Indication: PSORIASIS
     Route: 058
     Dates: start: 20101119
  10. USTEKINUMAB [Suspect]
     Active Substance: USTEKINUMAB
     Indication: PSORIASIS
     Route: 058
     Dates: start: 20100223
  11. USTEKINUMAB [Suspect]
     Active Substance: USTEKINUMAB
     Indication: PSORIASIS
     Route: 058
     Dates: start: 20100121
  12. USTEKINUMAB [Suspect]
     Active Substance: USTEKINUMAB
     Indication: PSORIASIS
     Route: 058
     Dates: start: 20120420
  13. PROTOPIC [Concomitant]
     Active Substance: TACROLIMUS
     Indication: PSORIASIS
     Route: 061
     Dates: start: 2006
  14. CLODERM [Concomitant]
     Active Substance: CLOCORTOLONE PIVALATE
     Indication: PSORIASIS
     Route: 061
     Dates: start: 20120420
  15. USTEKINUMAB [Suspect]
     Active Substance: USTEKINUMAB
     Indication: PSORIASIS
     Route: 058
     Dates: start: 20120720
  16. USTEKINUMAB [Suspect]
     Active Substance: USTEKINUMAB
     Indication: PSORIASIS
     Route: 058
     Dates: start: 20110224
  17. NYQUIL COLD AND FLU [Concomitant]
     Active Substance: ACETAMINOPHEN\DEXTROMETHORPHAN HYDROBROMIDE\DOXYLAMINE SUCCINATE
     Indication: UPPER RESPIRATORY TRACT INFECTION
     Route: 048
     Dates: start: 20110221, end: 20110622

REACTIONS (3)
  - Rhabdomyolysis [Fatal]
  - Cardiac arrest [Fatal]
  - Pneumonia [Fatal]

NARRATIVE: CASE EVENT DATE: 20130112
